FAERS Safety Report 8547886-7 (Version None)
Quarter: 2012Q3

REPORT INFORMATION
  Report Type: 
  Country: None (occurrence: None)
  Receive Date: 20120728
  Receipt Date: 20120718
  Transmission Date: 20120928
  Serious: Yes (Other)
  Sender: FDA-Public Use
  Company Number: GB-009507513-1207GBR007989

PATIENT

DRUGS (2)
  1. SINEMET CR [Suspect]
     Dosage: X 2 DAY
     Route: 048
  2. SINEMET [Suspect]
     Dosage: X 5 DAY
     Route: 048

REACTIONS (2)
  - PNEUMONIA ASPIRATION [None]
  - GASTROINTESTINAL DISORDER [None]
